FAERS Safety Report 4713602-X (Version None)
Quarter: 2005Q3

REPORT INFORMATION
  Report Type: 
  Country: None (occurrence: None)
  Receive Date: 20050712
  Receipt Date: 20050624
  Transmission Date: 20060218
  Serious: Yes (Life-Threatening, Hospitalization)
  Sender: FDA-Public Use
  Company Number: 2005-01232

PATIENT
  Age: 53 Year
  Sex: Male

DRUGS (5)
  1. IMMUCYST [Suspect]
     Indication: BLADDER CANCER STAGE III
     Dosage: (81.0 MG) I.VES.,BLADDER
     Dates: start: 20040108, end: 20040304
  2. DICLOFENAC SODIUM [Concomitant]
  3. LEVOFLOXACIN [Concomitant]
  4. ETODOLAC [Concomitant]
  5. REBAMIPINE [Concomitant]

REACTIONS (1)
  - URINARY TRACT INFECTION [None]
